FAERS Safety Report 5031217-3 (Version None)
Quarter: 2006Q2

REPORT INFORMATION
  Report Type: 
  Country: None (occurrence: None)
  Receive Date: 20060621
  Receipt Date: 20060403
  Transmission Date: 20061013
  Serious: No
  Sender: FDA-Public Use
  Company Number: US-GLAXOSMITHKLINE-A0600127A

PATIENT
  Age: 58 Year
  Sex: Female

DRUGS (2)
  1. AVANDARYL [Suspect]
     Route: 048
     Dates: start: 20060401
  2. TYLENOL W/ CODEINE NO. 3 [Concomitant]

REACTIONS (1)
  - DIARRHOEA [None]
